FAERS Safety Report 14681710 (Version 1)
Quarter: 2018Q1

REPORT INFORMATION
  Report Type: Spontaneous
  Country: US (occurrence: US)
  Receive Date: 20180326
  Receipt Date: 20180326
  Transmission Date: 20180509
  Serious: No
  Sender: FDA-Public Use
  Company Number: US-JNJFOC-20180308257

PATIENT
  Sex: Female

DRUGS (1)
  1. TYLENOL EXTRA STRENGTH [Suspect]
     Active Substance: ACETAMINOPHEN
     Indication: PAIN
     Dosage: 1 3/4 TABLET TO 1 2/3 TABLET THREE TO FOUR TIMES A DAY
     Route: 048

REACTIONS (2)
  - Pain [Unknown]
  - Wrong technique in product usage process [Unknown]
